FAERS Safety Report 4551652-7 (Version None)
Quarter: 2005Q1

REPORT INFORMATION
  Report Type: 
  Country: None (occurrence: None)
  Receive Date: 20050110
  Receipt Date: 20041228
  Transmission Date: 20050727
  Serious: Yes (Hospitalization)
  Sender: FDA-Public Use
  Company Number: 2004115102

PATIENT
  Age: 71 Year
  Sex: Male
  Weight: 50 kg

DRUGS (5)
  1. CABERGOLINE [Suspect]
     Indication: PARKINSON'S DISEASE
     Dosage: 0.25 MG (0.25 MG 1 IN 1 D ) ORAL
     Route: 048
     Dates: start: 20041111, end: 20041116
  2. MADOPAR                       (BENSERAZIDE HYDROCHLORIDE, LEVODOPA) [Concomitant]
  3. BENIDIPINE HYDROCHLORIDE                 (BENIDIPINE HYDROCHLORIDE) [Concomitant]
  4. BISOPROLOL FUMARATE [Concomitant]
  5. AMLODIPINE BESYLATE [Concomitant]

REACTIONS (11)
  - BLOOD CREATINE PHOSPHOKINASE INCREASED [None]
  - CEREBRAL HAEMORRHAGE TRAUMATIC [None]
  - CONTUSION [None]
  - FALL [None]
  - GAIT DISTURBANCE [None]
  - HYPOKINESIA [None]
  - MASKED FACIES [None]
  - MUSCLE RIGIDITY [None]
  - MYOGLOBIN BLOOD INCREASED [None]
  - NEUROLEPTIC MALIGNANT SYNDROME [None]
  - SUBDURAL HYGROMA [None]
